FAERS Safety Report 10276714 (Version 2)
Quarter: 2014Q3

REPORT INFORMATION
  Report Type: Report from Study
  Country: DE (occurrence: DE)
  Receive Date: 20140703
  Receipt Date: 20140703
  Transmission Date: 20150326
  Serious: Yes (Other)
  Sender: FDA-Public Use
  Company Number: DE-BAYER-2014-095484

PATIENT
  Age: 38 Year
  Sex: Female
  Weight: 83 kg

DRUGS (1)
  1. BETAFERON [Suspect]
     Active Substance: INTERFERON BETA-1B
     Indication: MULTIPLE SCLEROSIS
     Dosage: 250 ?G/ML, QOD
     Dates: start: 201307

REACTIONS (4)
  - Malaise [Recovered/Resolved]
  - Palpitations [Recovered/Resolved]
  - Pallor [Recovered/Resolved]
  - Arrhythmia [Recovered/Resolved]

NARRATIVE: CASE EVENT DATE: 20140617
